FAERS Safety Report 24094211 (Version 2)
Quarter: 2024Q3

REPORT INFORMATION
  Report Type: Report from Study
  Country: CO (occurrence: CO)
  Receive Date: 20240716
  Receipt Date: 20240731
  Transmission Date: 20241017
  Serious: Yes (Hospitalization, Other)
  Sender: ROCHE
  Company Number: CO-ROCHE-10000022899

PATIENT
  Age: 4 Month
  Sex: Male
  Weight: 6.1 kg

DRUGS (3)
  1. EVRYSDI [Suspect]
     Active Substance: RISDIPLAM
     Indication: Spinal muscular atrophy
     Dosage: DOSE: 1.4 CC?LAST DOSE ON 28-JUL-2024 AS 1.55 CC
     Route: 048
     Dates: start: 20240607
  2. EVRYSDI [Suspect]
     Active Substance: RISDIPLAM
     Dosage: DOSE: 1.5 CC, DOSE REPORTED ON 28-JUL-2024
     Route: 048
  3. AMIKACIN [Concomitant]
     Active Substance: AMIKACIN
     Dosage: DOSE AND FREQUENCY WERE NOT REPORTED

REACTIONS (4)
  - Tachycardia [Recovered/Resolved]
  - Urinary tract infection [Recovered/Resolved]
  - Respiratory disorder [Not Recovered/Not Resolved]
  - Pneumonia [Recovered/Resolved]

NARRATIVE: CASE EVENT DATE: 20240705
